FAERS Safety Report 13548836 (Version 1)
Quarter: 2017Q2

REPORT INFORMATION
  Report Type: Spontaneous
  Country: US (occurrence: US)
  Receive Date: 20170516
  Receipt Date: 20170516
  Transmission Date: 20170830
  Serious: No
  Sender: FDA-Public Use
  Company Number: US-BION-005895

PATIENT
  Age: 49 Year
  Sex: Male
  Weight: 79.38 kg

DRUGS (1)
  1. EQUATE IBUPROFEN [Suspect]
     Active Substance: IBUPROFEN
     Indication: MUSCULOSKELETAL PAIN
     Dosage: 2 SOFTGELS, ONCE
     Route: 048
     Dates: start: 20170105

REACTIONS (3)
  - Abdominal discomfort [Recovered/Resolved]
  - Product odour abnormal [Not Recovered/Not Resolved]
  - Poor quality drug administered [Not Recovered/Not Resolved]

NARRATIVE: CASE EVENT DATE: 20170105
